FAERS Safety Report 7167181-0 (Version None)
Quarter: 2010Q4

REPORT INFORMATION
  Report Type: 
  Country: None (occurrence: None)
  Receive Date: 20101213
  Receipt Date: 20101213
  Transmission Date: 20110411
  Serious: No
  Sender: FDA-Public Use
  Company Number: None

PATIENT
  Age: 28 Year
  Sex: Female
  Weight: 62 kg

DRUGS (1)
  1. ISONIAZID [Suspect]
     Indication: LATENT TUBERCULOSIS
     Dosage: 300 MG EVERY DAY PO
     Route: 048
     Dates: start: 20100511, end: 20100921

REACTIONS (2)
  - NEUROPATHY PERIPHERAL [None]
  - TREATMENT NONCOMPLIANCE [None]
